FAERS Safety Report 5903338-1 (Version None)
Quarter: 2008Q3

REPORT INFORMATION
  Report Type: 
  Country: None (occurrence: None)
  Receive Date: 20080926
  Receipt Date: 20080910
  Transmission Date: 20090109
  Serious: Yes (Hospitalization, Other)
  Sender: FDA-Public Use
  Company Number: DSA_32436_2008

PATIENT
  Sex: Male

DRUGS (14)
  1. ENALAPRIL MALEATE [Suspect]
     Indication: ARTHRITIS
     Dosage: (DF ORAL)
     Route: 048
  2. ENALAPRIL MALEATE [Suspect]
     Indication: DRUG USE FOR UNKNOWN INDICATION
     Dosage: (DF ORAL)
     Route: 048
  3. VIOXX [Suspect]
     Indication: BACK PAIN
     Dosage: DF ORAL
     Route: 048
  4. CELEBREX [Suspect]
     Indication: DRUG USE FOR UNKNOWN INDICATION
     Dosage: DF
  5. BISOPROLOL FUMARATE [Suspect]
     Indication: DRUG USE FOR UNKNOWN INDICATION
     Dosage: DF
  6. COVERA-HS [Concomitant]
  7. PREVACID [Concomitant]
  8. ZIAC /01166101/ [Concomitant]
  9. VASOTEC [Concomitant]
  10. ULTRAM [Concomitant]
  11. ZYRTEC [Concomitant]
  12. BECLOMETHASONE DIPROPIONATE [Concomitant]
  13. CORTISONE [Concomitant]
  14. TRAMADOL HCL [Concomitant]

REACTIONS (37)
  - ALCOHOL ABUSE [None]
  - ANAEMIA MACROCYTIC [None]
  - ARTHRITIS [None]
  - ASTHMA [None]
  - BRONCHITIS [None]
  - CARDIAC FAILURE CONGESTIVE [None]
  - CARDIOMEGALY [None]
  - COMPLEX PARTIAL SEIZURES [None]
  - CONDITION AGGRAVATED [None]
  - CONSTIPATION [None]
  - COSTOCHONDRITIS [None]
  - COUGH [None]
  - CYST [None]
  - DEAFNESS [None]
  - DIABETES MELLITUS [None]
  - DYSLIPIDAEMIA [None]
  - DYSPEPSIA [None]
  - DYSPNOEA [None]
  - ELECTROLYTE IMBALANCE [None]
  - EYELID PTOSIS [None]
  - FATIGUE [None]
  - FEELING ABNORMAL [None]
  - GASTROOESOPHAGEAL REFLUX DISEASE [None]
  - HYPOAESTHESIA ORAL [None]
  - INTERVERTEBRAL DISC DISORDER [None]
  - MUSCULOSKELETAL CHEST PAIN [None]
  - NEUROLOGICAL SYMPTOM [None]
  - NOCTURIA [None]
  - ORTHOPNOEA [None]
  - PNEUMONIA [None]
  - POSTNASAL DRIP [None]
  - SINOBRONCHITIS [None]
  - SINUS CONGESTION [None]
  - SNORING [None]
  - SYNCOPE [None]
  - TRANSIENT ISCHAEMIC ATTACK [None]
  - UPPER RESPIRATORY TRACT INFECTION [None]
